FAERS Safety Report 9605945 (Version 1)
Quarter: 2013Q4

REPORT INFORMATION
  Report Type: Report from Study
  Country: AU (occurrence: AU)
  Receive Date: 20131008
  Receipt Date: 20131008
  Transmission Date: 20140711
  Serious: Yes (Death, Other)
  Sender: FDA-Public Use
  Company Number: AU-ROCHE-1285715

PATIENT
  Age: 72 Year
  Sex: Female

DRUGS (2)
  1. RITUXIMAB [Suspect]
     Indication: MYELITIS TRANSVERSE
     Dosage: 500 MG TWICE
     Route: 065
  2. IMMUNOGLOBULIN [Concomitant]
     Route: 042

REACTIONS (3)
  - Death [Fatal]
  - Pneumonia [Recovered/Resolved]
  - Off label use [Unknown]
